FAERS Safety Report 10726542 (Version 3)
Quarter: 2015Q2

REPORT INFORMATION
  Report Type: Report from Study
  Country: CA (occurrence: CA)
  Receive Date: 20150121
  Receipt Date: 20150528
  Transmission Date: 20150821
  Serious: Yes (Hospitalization, Other)
  Sender: FDA-Public Use
  Company Number: CA-AMGEN-CANSL2015003758

PATIENT
  Age: 63 Year
  Sex: Female
  Weight: 79.7 kg

DRUGS (29)
  1. PANTOLOC                           /01263204/ [Concomitant]
     Active Substance: PANTOPRAZOLE SODIUM
     Indication: GASTROOESOPHAGEAL REFLUX DISEASE
     Dosage: 40 MG, BID
  2. NITROGLYCERIN. [Concomitant]
     Active Substance: NITROGLYCERIN
     Indication: HIATUS HERNIA
  3. MS CONTIN [Concomitant]
     Active Substance: MORPHINE SULFATE
     Indication: INTERVERTEBRAL DISC DEGENERATION
     Dosage: 60MG IN AM AND 90 MG IN PM
  4. MS-IR [Concomitant]
     Indication: PAIN
     Dosage: 30 MG, AS NECESSARY
  5. NEURONTIN [Concomitant]
     Active Substance: GABAPENTIN
     Indication: INTERVERTEBRAL DISC DEGENERATION
     Dosage: 600 MG, QID
  6. PROLIA [Suspect]
     Active Substance: DENOSUMAB
     Indication: OSTEOPOROSIS POSTMENOPAUSAL
     Dosage: 60 MG, Q6MO
     Route: 058
     Dates: start: 20141119
  7. CALCIUM [Concomitant]
     Active Substance: CALCIUM
     Dosage: 333 MG, UNK
  8. SYMBICORT [Concomitant]
     Active Substance: BUDESONIDE\FORMOTEROL FUMARATE DIHYDRATE
     Indication: ASTHMA
     Dosage: 200 UNK, 2 PUFFS IN A.M
  9. DOMPERIDONE [Concomitant]
     Active Substance: DOMPERIDONE
     Indication: GASTROOESOPHAGEAL REFLUX DISEASE
     Dosage: 10 MG, BEFORE MEALS AND BEDTIME
  10. NOVO-SUCRALATE [Concomitant]
     Indication: HIATUS HERNIA
  11. PROZAC [Concomitant]
     Active Substance: FLUOXETINE HYDROCHLORIDE
     Indication: DEPRESSION
     Dosage: 40 MG, QD
  12. VITAMIN C [Concomitant]
     Active Substance: ASCORBIC ACID
  13. NOVO-SUCRALATE [Concomitant]
     Indication: GASTROOESOPHAGEAL REFLUX DISEASE
     Dosage: 1 G, QID
  14. PANTOLOC                           /01263204/ [Concomitant]
     Active Substance: PANTOPRAZOLE SODIUM
     Indication: HIATUS HERNIA
  15. VENTOLIN P.F. [Concomitant]
     Indication: ASTHMA
     Dosage: 5 MG, AS NECESSARY
  16. LOMOTIL [Concomitant]
     Active Substance: ATROPINE SULFATE\DIPHENOXYLATE HYDROCHLORIDE
     Indication: CROHN^S DISEASE
     Dosage: 0.025 MG, AS NECESSARY
  17. VITAMIN D3 [Concomitant]
     Active Substance: CHOLECALCIFEROL
     Dosage: 5MCG/200IU, BID
  18. PSYLLIUM HUSK                      /00029101/ [Concomitant]
     Dosage: UNK
  19. HYDROCORTISONE. [Concomitant]
     Active Substance: HYDROCORTISONE
     Indication: ECZEMA
     Dosage: UNK UNK, TWICE DAILY AS NECESSARY
  20. VITAMIN D                          /00107901/ [Concomitant]
     Active Substance: ERGOCALCIFEROL
     Dosage: 1000 IU, QD
  21. WARFARIN [Concomitant]
     Active Substance: WARFARIN
     Indication: PULMONARY EMBOLISM
     Dosage: UNK
  22. AVAPRO [Concomitant]
     Active Substance: IRBESARTAN
     Indication: HYPERTENSION
  23. OMNARIS [Concomitant]
     Active Substance: CICLESONIDE
     Indication: ASTHMA
     Dosage: UNK, 2 SPRAYS IN EACH NOSTRIL BEFORE BEDTIME
  24. ANUSOL HC                          /00028604/ [Concomitant]
     Indication: CROHN^S DISEASE
     Dosage: UNK UNK, AS NECESSARY
  25. VENTOLIN [Concomitant]
     Active Substance: ALBUTEROL SULFATE
     Indication: ASTHMA
     Dosage: UNK UNK, AS NECESSARY
  26. DOMPERIDONE [Concomitant]
     Active Substance: DOMPERIDONE
     Indication: HIATUS HERNIA
  27. NITROGLYCERIN. [Concomitant]
     Active Substance: NITROGLYCERIN
     Indication: GASTROOESOPHAGEAL REFLUX DISEASE
     Dosage: 0.4 MG, AS NECESSARY
  28. COLACE [Concomitant]
     Active Substance: DOCUSATE SODIUM
     Indication: INTERVERTEBRAL DISC DEGENERATION
     Dosage: 100 MG, QHS
  29. MAGNESIUM [Concomitant]
     Active Substance: MAGNESIUM
     Dosage: 167 MG, UNK

REACTIONS (11)
  - Joint injury [Recovered/Resolved]
  - Malaise [Unknown]
  - Pathological fracture [Unknown]
  - Pain [Unknown]
  - Haematoma [Unknown]
  - Dizziness [Recovered/Resolved]
  - Facial bones fracture [Unknown]
  - Haemarthrosis [Unknown]
  - Mobility decreased [Unknown]
  - Epistaxis [Unknown]
  - Fall [Recovered/Resolved]

NARRATIVE: CASE EVENT DATE: 201412
